FAERS Safety Report 10556819 (Version 1)
Quarter: 2014Q4

REPORT INFORMATION
  Report Type: Spontaneous
  Country: US (occurrence: US)
  Receive Date: 20141031
  Receipt Date: 20141031
  Transmission Date: 20150529
  Serious: Yes (Hospitalization, Other)
  Sender: FDA-Public Use
  Company Number: US-AMGEN-USASP2014083751

PATIENT
  Age: 75 Year
  Sex: Female

DRUGS (2)
  1. METHOTREXATE [Concomitant]
     Active Substance: METHOTREXATE
     Dosage: 4 TABLETS
     Dates: end: 201410
  2. ENBREL [Suspect]
     Active Substance: ETANERCEPT
     Indication: RHEUMATOID ARTHRITIS
     Dosage: 50 MG, QWK
     Route: 065
     Dates: start: 2012, end: 201409

REACTIONS (13)
  - Dysphagia [Unknown]
  - Lip swelling [Unknown]
  - Gastric disorder [Recovered/Resolved]
  - Dyspnoea [Not Recovered/Not Resolved]
  - Pharyngeal oedema [Unknown]
  - Platelet count decreased [Not Recovered/Not Resolved]
  - Appetite disorder [Unknown]
  - Diarrhoea [Recovered/Resolved]
  - Colitis ulcerative [Recovered/Resolved]
  - Red blood cell count decreased [Not Recovered/Not Resolved]
  - Oesophageal ulcer [Recovered/Resolved]
  - Stomatitis [Unknown]
  - White blood cell count decreased [Not Recovered/Not Resolved]

NARRATIVE: CASE EVENT DATE: 201409
